FAERS Safety Report 18454919 (Version 1)
Quarter: 2020Q4

REPORT INFORMATION
  Report Type: Report from Study
  Country: FR (occurrence: FR)
  Receive Date: 20201102
  Receipt Date: 20201102
  Transmission Date: 20210114
  Serious: Yes (Death)
  Sender: FDA-Public Use
  Company Number: FR-PFIZER INC-2020423274

PATIENT

DRUGS (11)
  1. DOXORUBICIN HCL [Suspect]
     Active Substance: DOXORUBICIN HYDROCHLORIDE
     Indication: SMALL CELL LUNG CANCER
     Dosage: 70 MG/M2, CYCLIC (D5)
     Route: 042
  2. CISPLATIN. [Suspect]
     Active Substance: CISPLATIN
     Dosage: 60 MG/M2, CYCLIC (D1)
     Route: 042
  3. ETOPOSIDE. [Suspect]
     Active Substance: ETOPOSIDE
     Dosage: 120 MG/M2, CYCLIC (D3, D5 AND D8)
     Route: 042
  4. IFOSFAMIDE. [Suspect]
     Active Substance: IFOSFAMIDE
     Indication: SMALL CELL LUNG CANCER
     Dosage: 3000 MG/M2, CYCLIC (D1 D2)
     Route: 042
  5. CISPLATIN. [Suspect]
     Active Substance: CISPLATIN
     Indication: SMALL CELL LUNG CANCER
     Dosage: 60 MG/M2, CYCLIC (D3 D4)
     Route: 042
  6. ONDANSETRON [Concomitant]
     Active Substance: ONDANSETRON
     Dosage: 8 MG CYCLIC (D1 TO D5)
  7. ETOPOSIDE. [Suspect]
     Active Substance: ETOPOSIDE
     Indication: SMALL CELL LUNG CANCER
     Dosage: 110 MG/M2, CYCLIC (D1 TO D4)
     Route: 042
  8. VINDESINE SULFATE [Suspect]
     Active Substance: VINDESINE SULFATE
     Indication: SMALL CELL LUNG CANCER
     Dosage: 2 MG/M2, CYCLIC (D1 D5)
     Route: 042
  9. MESNA. [Concomitant]
     Active Substance: MESNA
     Indication: PROPHYLAXIS
     Dosage: 4500 MG/M2, CYCLIC (D1 AND D2)
  10. METHYLPREDNISOLONE. [Concomitant]
     Active Substance: METHYLPREDNISOLONE
     Dosage: 120 MG/M2 (D1 TO D5)
  11. NEUPOGEN [Concomitant]
     Active Substance: FILGRASTIM
     Dosage: 5 UG/KG, CYCLIC (D8 TO HEMATOLOGICAL RECOVERY)

REACTIONS (1)
  - Second primary malignancy [Fatal]
